FAERS Safety Report 16410207 (Version 2)
Quarter: 2019Q4

REPORT INFORMATION
  Report Type: Spontaneous
  Country: CA (occurrence: CA)
  Receive Date: 20190610
  Receipt Date: 20191009
  Transmission Date: 20200122
  Serious: Yes (Life-Threatening)
  Sender: FDA-Public Use
  Company Number: CA-PFIZER INC-2019244155

PATIENT
  Age: 60 Year
  Sex: Female
  Weight: 92.63 kg

DRUGS (1)
  1. MITOXANTRONE HCL [Suspect]
     Active Substance: MITOXANTRONE HYDROCHLORIDE
     Indication: MULTIPLE SCLEROSIS
     Dosage: 12 MG/M2, SINGLE
     Route: 042
     Dates: start: 200501, end: 200801

REACTIONS (3)
  - Breast cancer [Unknown]
  - Product use in unapproved indication [Unknown]
  - Off label use [Unknown]
